FAERS Safety Report 7824072-7 (Version None)
Quarter: 2011Q4

REPORT INFORMATION
  Report Type: 
  Country: None (occurrence: None)
  Receive Date: 20111019
  Receipt Date: 20111011
  Transmission Date: 20120403
  Serious: Yes (Other)
  Sender: FDA-Public Use
  Company Number: PHHY2011BR91230

PATIENT
  Age: 29 Year
  Sex: Female

DRUGS (1)
  1. CLOZAPINE [Suspect]
     Indication: SCHIZOPHRENIA
     Dosage: 500 MG A DAY
     Dates: start: 20050101

REACTIONS (3)
  - FAECAL INCONTINENCE [None]
  - SALIVARY HYPERSECRETION [None]
  - URINARY INCONTINENCE [None]
